FAERS Safety Report 10015366 (Version 3)
Quarter: 2014Q2

REPORT INFORMATION
  Report Type: Spontaneous
  Country: US (occurrence: US)
  Receive Date: 20140317
  Receipt Date: 20140513
  Transmission Date: 20141212
  Serious: No
  Sender: FDA-Public Use
  Company Number: US-PFIZER INC-2014076740

PATIENT
  Sex: Female

DRUGS (1)
  1. CHANTIX [Suspect]
     Indication: DRUG ABUSE
     Dosage: UNK

REACTIONS (5)
  - Intentional product misuse [Unknown]
  - Abnormal dreams [Unknown]
  - Somnolence [Unknown]
  - Therapeutic response changed [Unknown]
  - Pre-existing condition improved [Unknown]
